FAERS Safety Report 9976987 (Version 1)
Quarter: 2014Q1

REPORT INFORMATION
  Report Type: Spontaneous
  Country: US (occurrence: US)
  Receive Date: 20140306
  Receipt Date: 20140306
  Transmission Date: 20141002
  Serious: No
  Sender: FDA-Public Use
  Company Number: US-ABBVIE-13P-163-1168275-00

PATIENT
  Age: 21 Year
  Sex: Female
  Weight: 61.29 kg

DRUGS (2)
  1. HUMIRA [Suspect]
     Indication: JUVENILE IDIOPATHIC ARTHRITIS
     Dates: start: 201307, end: 201308
  2. TRAMADOL [Concomitant]
     Indication: PAIN

REACTIONS (2)
  - Local swelling [Not Recovered/Not Resolved]
  - Inflammation [Not Recovered/Not Resolved]
